FAERS Safety Report 18400001 (Version 1)
Quarter: 2020Q4

REPORT INFORMATION
  Report Type: Spontaneous
  Country: US (occurrence: US)
  Receive Date: 20201019
  Receipt Date: 20201019
  Transmission Date: 20210114
  Serious: Yes (Other)
  Sender: FDA-Public Use
  Company Number: US-AMERICAN REGENT INC-2020002145

PATIENT
  Age: 76 Year
  Sex: Female
  Weight: 57.6 kg

DRUGS (4)
  1. MIRCERA [Suspect]
     Active Substance: METHOXY POLYETHYLENE GLYCOL-EPOETIN BETA
     Indication: NEPHROGENIC ANAEMIA
     Dosage: 225 MICROGRAM (75 MICROGRAM X 3) EVERY TWO WEEKS
     Dates: start: 20200721
  2. VENOFER [Suspect]
     Active Substance: IRON SUCROSE
     Indication: PRODUCT USED FOR UNKNOWN INDICATION
     Dosage: 100 MILLIGRAM (TOOK 5 DOSES)
     Route: 042
     Dates: start: 20200820, end: 20200829
  3. VENOFER [Suspect]
     Active Substance: IRON SUCROSE
     Dosage: 50 MILLIGRAM, 1 IN 1 WK
     Dates: start: 20200903
  4. MIRCERA [Suspect]
     Active Substance: METHOXY POLYETHYLENE GLYCOL-EPOETIN BETA
     Dosage: 4TH DOSE (225 MCG,1 IN 2 WK)
     Dates: start: 20200901, end: 20200901

REACTIONS (1)
  - Drug hypersensitivity [Recovered/Resolved]

NARRATIVE: CASE EVENT DATE: 20200901
